FAERS Safety Report 7907635-X (Version None)
Quarter: 2011Q4

REPORT INFORMATION
  Report Type: 
  Country: None (occurrence: None)
  Receive Date: 20111110
  Receipt Date: 20111101
  Transmission Date: 20120403
  Serious: Yes (Other)
  Sender: FDA-Public Use
  Company Number: US-ASTRAZENECA-2011SE66052

PATIENT
  Age: 50 Year
  Sex: Female
  Weight: 93 kg

DRUGS (5)
  1. ARIMIDEX [Suspect]
     Indication: BREAST CANCER
     Route: 048
  2. FLUOXETINE HCL [Concomitant]
  3. SEROQUEL XR [Suspect]
     Indication: DEPRESSION
     Route: 048
  4. LAMICTAL [Concomitant]
  5. ANIRIDIA INFUSION [Concomitant]
     Dosage: MONTH

REACTIONS (3)
  - METASTASES TO BONE [None]
  - BONE DISORDER [None]
  - ACCIDENT [None]
